FAERS Safety Report 11806393 (Version 1)
Quarter: 2015Q4

REPORT INFORMATION
  Report Type: Spontaneous
  Country: US (occurrence: None)
  Receive Date: 20151204
  Receipt Date: 20151204
  Transmission Date: 20160305
  Serious: No
  Sender: FDA-Public Use
  Company Number: None

PATIENT

DRUGS (1)
  1. POSACONAZOLE [Suspect]
     Active Substance: POSACONAZOLE

REACTIONS (6)
  - Incorrect product formulation administered [None]
  - Anaemia [None]
  - Accidental overdose [None]
  - Malaise [None]
  - Back pain [None]
  - Decreased appetite [None]
